FAERS Safety Report 6444558-X (Version None)
Quarter: 2009Q4

REPORT INFORMATION
  Report Type: 
  Country: None (occurrence: None)
  Receive Date: 20091118
  Receipt Date: 20090824
  Transmission Date: 20100525
  Serious: No
  Sender: FDA-Public Use
  Company Number: A0803797A

PATIENT
  Age: 77 Year
  Sex: Female

DRUGS (4)
  1. COREG CR [Suspect]
     Indication: DRUG USE FOR UNKNOWN INDICATION
     Dosage: 40MG PER DAY
     Route: 048
     Dates: start: 20080101
  2. AVAPRO [Concomitant]
  3. BABY ASPIRIN [Concomitant]
  4. DIURETIC [Concomitant]

REACTIONS (1)
  - CONTUSION [None]
